FAERS Safety Report 12665021 (Version 3)
Quarter: 2017Q1

REPORT INFORMATION
  Report Type: Spontaneous
  Country: DE (occurrence: DE)
  Receive Date: 20160818
  Receipt Date: 20170110
  Transmission Date: 20170428
  Serious: Yes (Life-Threatening, Hospitalization, Other)
  Sender: FDA-Public Use
  Company Number: DE-PURDUE PHARMA-DEU-2016-0018225

PATIENT
  Age: 64 Year
  Sex: Male

DRUGS (9)
  1. LANTUS [Concomitant]
     Active Substance: INSULIN GLARGINE
  2. OXYGESIC [Suspect]
     Active Substance: OXYCODONE
     Dosage: 100 MG, DAILY
     Route: 065
     Dates: start: 2013
  3. OXYGESIC [Suspect]
     Active Substance: OXYCODONE
     Indication: PAIN
     Dosage: 20 MG, SEE TEXT
     Route: 065
  4. OMEPRAZOL                          /00661201/ [Concomitant]
     Active Substance: OMEPRAZOLE
  5. DICLOFENAC [Concomitant]
     Active Substance: DICLOFENAC
  6. METFORMIN [Concomitant]
     Active Substance: METFORMIN HYDROCHLORIDE
  7. OXYGESIC [Suspect]
     Active Substance: OXYCODONE
     Dosage: 30 MG, DAILY
     Route: 065
  8. XELEVIA [Concomitant]
     Active Substance: SITAGLIPTIN PHOSPHATE
  9. GLIMEPIRID [Concomitant]
     Active Substance: GLIMEPIRIDE

REACTIONS (10)
  - Overdose [Unknown]
  - Confusional state [Recovered/Resolved]
  - Drug withdrawal syndrome [Recovering/Resolving]
  - Memory impairment [Recovering/Resolving]
  - Abnormal behaviour [Recovering/Resolving]
  - Disorientation [Recovering/Resolving]
  - Transient ischaemic attack [Unknown]
  - Inappropriate schedule of drug administration [Unknown]
  - Aphasia [Recovering/Resolving]
  - Speech disorder [Recovering/Resolving]

NARRATIVE: CASE EVENT DATE: 201608
